FAERS Safety Report 5307280-9 (Version None)
Quarter: 2007Q2

REPORT INFORMATION
  Report Type: 
  Country: None (occurrence: None)
  Receive Date: 20070423
  Receipt Date: 20070423
  Transmission Date: 20071010
  Serious: No
  Sender: FDA-Public Use
  Company Number: None

PATIENT
  Sex: Female
  Weight: 86.1834 kg

DRUGS (5)
  1. CLOZAPINE [Suspect]
     Indication: SCHIZOAFFECTIVE DISORDER
     Dosage: 50MG QAM + 50MG Q1PM + 175MG HS PO
     Route: 048
     Dates: start: 20060921
  2. ATIVAN [Concomitant]
  3. LITHOBID [Concomitant]
  4. PREMARIN [Concomitant]
  5. PROCARDIA XL [Concomitant]

REACTIONS (1)
  - EOSINOPHIL COUNT INCREASED [None]
